FAERS Safety Report 9781098 (Version 1)
Quarter: 2013Q4

REPORT INFORMATION
  Report Type: Spontaneous
  Country: US (occurrence: None)
  Receive Date: 20131223
  Receipt Date: 20131223
  Transmission Date: 20140711
  Serious: Yes (Other)
  Sender: FDA-Public Use
  Company Number: None

PATIENT
  Age: 75 Year
  Sex: Male
  Weight: 91.63 kg

DRUGS (1)
  1. MYRBETRIQ [Suspect]
     Indication: HYPERTONIC BLADDER
     Dates: start: 20131209, end: 20131214

REACTIONS (5)
  - Balance disorder [None]
  - Arthritis [None]
  - Swelling [None]
  - Diarrhoea [None]
  - Confusional state [None]
